FAERS Safety Report 4774917-2 (Version None)
Quarter: 2005Q3

REPORT INFORMATION
  Report Type: 
  Country: None (occurrence: None)
  Receive Date: 20050921
  Receipt Date: 20050909
  Transmission Date: 20060218
  Serious: Yes (Death)
  Sender: FDA-Public Use
  Company Number: FR-BRISTOL-MYERS SQUIBB COMPANY-13109376

PATIENT
  Age: 61 Year
  Sex: Male

DRUGS (6)
  1. VASTEN TABS 20 MG [Suspect]
     Indication: DYSLIPIDAEMIA
     Route: 048
     Dates: start: 20050215, end: 20050401
  2. REMICADE [Suspect]
     Indication: RHEUMATOID ARTHRITIS
     Route: 042
     Dates: start: 20010901, end: 20050214
  3. METHOTREXATE [Concomitant]
     Route: 048
     Dates: end: 20050401
  4. FOSAMAX [Concomitant]
     Route: 048
     Dates: end: 20050401
  5. SPECIAFOLDINE [Concomitant]
     Route: 048
     Dates: end: 20050401
  6. OROCAL D3 [Concomitant]
     Route: 048
     Dates: end: 20050401

REACTIONS (6)
  - DRUG INTOLERANCE [None]
  - HAEMATURIA [None]
  - MUSCLE SPASMS [None]
  - NAUSEA [None]
  - RENAL IMPAIRMENT [None]
  - SUDDEN DEATH [None]
